FAERS Safety Report 18389413 (Version 1)
Quarter: 2020Q4

REPORT INFORMATION
  Report Type: Spontaneous
  Country: US (occurrence: US)
  Receive Date: 20201015
  Receipt Date: 20201015
  Transmission Date: 20210114
  Serious: Yes (Hospitalization, Other)
  Sender: FDA-Public Use
  Company Number: US-BAYER-2019-058130

PATIENT
  Age: 58 Year
  Sex: Female

DRUGS (3)
  1. ASPIRIN (CARDIO) [Suspect]
     Active Substance: ASPIRIN
     Indication: PRODUCT USED FOR UNKNOWN INDICATION
     Dosage: 325 MG, UNK
     Route: 065
     Dates: end: 201502
  2. XARELTO [Suspect]
     Active Substance: RIVAROXABAN
     Indication: PULMONARY EMBOLISM
     Dosage: UNK
     Route: 048
     Dates: start: 20130926, end: 20150128
  3. XARELTO [Suspect]
     Active Substance: RIVAROXABAN
     Dosage: 20 MG
     Dates: start: 2015, end: 201502

REACTIONS (3)
  - Iron deficiency anaemia [Recovering/Resolving]
  - Haemorrhage [Unknown]
  - Blood loss anaemia [Recovering/Resolving]

NARRATIVE: CASE EVENT DATE: 201501
